FAERS Safety Report 21044114 (Version 2)
Quarter: 2022Q3

REPORT INFORMATION
  Report Type: Spontaneous
  Country: US (occurrence: US)
  Receive Date: 20220705
  Receipt Date: 20220722
  Transmission Date: 20221027
  Serious: Yes (Other)
  Sender: FDA-Public Use
  Company Number: US-BAYER-2022A090737

PATIENT
  Age: 33 Year
  Sex: Male

DRUGS (2)
  1. KOGENATE FS [Suspect]
     Active Substance: ANTIHEMOPHILIC FACTOR, HUMAN RECOMBINANT
     Dosage: 1987 IU
     Route: 042
  2. KOGENATE FS [Suspect]
     Active Substance: ANTIHEMOPHILIC FACTOR, HUMAN RECOMBINANT
     Dosage: USED 2 MAJ DOSE OF KOGENATE
     Route: 042

REACTIONS (3)
  - Road traffic accident [None]
  - Haemorrhage [Recovered/Resolved]
  - Haemarthrosis [None]

NARRATIVE: CASE EVENT DATE: 20220625
